FAERS Safety Report 10215156 (Version 1)
Quarter: 2014Q2

REPORT INFORMATION
  Report Type: Spontaneous
  Country: US (occurrence: US)
  Receive Date: 20140603
  Receipt Date: 20140603
  Transmission Date: 20141212
  Serious: Yes (Other)
  Sender: FDA-Public Use
  Company Number: PHHY2014US063574

PATIENT
  Age: 67 Year
  Sex: Male

DRUGS (3)
  1. AMIODARONE [Suspect]
  2. DABIGATRAN [Concomitant]
  3. FUROSEMIDE [Concomitant]
     Indication: INAPPROPRIATE ANTIDIURETIC HORMONE SECRETION

REACTIONS (8)
  - Hypothyroidism [Recovered/Resolved]
  - Hyponatraemia [Recovering/Resolving]
  - Dizziness [Recovering/Resolving]
  - Asthenia [Recovering/Resolving]
  - Mental status changes [Recovering/Resolving]
  - Blood pressure decreased [Recovering/Resolving]
  - Blood osmolarity decreased [Recovering/Resolving]
  - Urine osmolarity increased [Recovering/Resolving]
